FAERS Safety Report 10182782 (Version 1)
Quarter: 2014Q2

REPORT INFORMATION
  Report Type: Spontaneous
  Country: PT (occurrence: PT)
  Receive Date: 20140520
  Receipt Date: 20140520
  Transmission Date: 20141212
  Serious: Yes (Hospitalization, Other)
  Sender: FDA-Public Use
  Company Number: PT-ACTAVIS-2014-09952

PATIENT
  Age: 72 Year
  Sex: Female

DRUGS (2)
  1. ALENDRONATE SODIUM- (UNKNOWN) [Suspect]
     Indication: OSTEOPOROSIS
     Dosage: 10 MG, DAILY
     Route: 065
  2. ALENDRONATE SODIUM W/COLECALCIFEROL [Suspect]
     Indication: OSTEOPOROSIS
     Dosage: 70 MG/2800 IU WEEKLY
     Route: 065

REACTIONS (5)
  - Atypical femur fracture [Recovered/Resolved]
  - Arthralgia [None]
  - Stress fracture [None]
  - Fall [None]
  - Bone disorder [None]
